FAERS Safety Report 18060222 (Version 2)
Quarter: 2020Q3

REPORT INFORMATION
  Report Type: Spontaneous
  Country: JP (occurrence: JP)
  Receive Date: 20200723
  Receipt Date: 20200812
  Transmission Date: 20201103
  Serious: Yes (Hospitalization, Other)
  Sender: FDA-Public Use
  Company Number: JP-009507513-2007JPN001010J

PATIENT
  Age: 48 Year

DRUGS (3)
  1. KEYTRUDA [Suspect]
     Active Substance: PEMBROLIZUMAB
     Indication: HEAD AND NECK CANCER
     Dosage: 200 MILLIGRAM, Q3W
     Route: 041
     Dates: start: 20200522, end: 20200522
  2. CISPLATIN. [Concomitant]
     Active Substance: CISPLATIN
     Indication: HEAD AND NECK CANCER
     Dosage: UNK
     Route: 065
     Dates: start: 20200522, end: 2020
  3. FLUOROURACIL. [Concomitant]
     Active Substance: FLUOROURACIL
     Indication: HEAD AND NECK CANCER
     Dosage: UNK
     Route: 065
     Dates: start: 20200522, end: 2020

REACTIONS (2)
  - Malignant neoplasm progression [Unknown]
  - Immune-mediated hepatic disorder [Recovered/Resolved]

NARRATIVE: CASE EVENT DATE: 2020
